FAERS Safety Report 9202516 (Version 1)
Quarter: 2013Q2

REPORT INFORMATION
  Report Type: Report from Study
  Country: US (occurrence: US)
  Receive Date: 20130401
  Receipt Date: 20130401
  Transmission Date: 20140414
  Serious: No
  Sender: FDA-Public Use
  Company Number: US-VERTEX PHARMACEUTICALS INC.-2013-004190

PATIENT
  Sex: Female

DRUGS (3)
  1. VX-950 (TELAPREVIR) [Suspect]
     Indication: HEPATITIS C
     Dosage: UNK
     Route: 048
     Dates: start: 20120919, end: 20121012
  2. RIBAVIRIN [Suspect]
     Indication: HEPATITIS C
     Dosage: UNK
     Dates: start: 20120919, end: 20121012
  3. PEGASYS [Suspect]
     Indication: HEPATITIS C
     Dosage: UNK
     Dates: start: 20120919, end: 20121012

REACTIONS (3)
  - Adverse event [Recovered/Resolved]
  - Skin disorder [Recovered/Resolved]
  - Anaemia [Recovered/Resolved]
